FAERS Safety Report 24689159 (Version 3)
Quarter: 2025Q1

REPORT INFORMATION
  Report Type: Spontaneous
  Country: RU (occurrence: RU)
  Receive Date: 20241203
  Receipt Date: 20250306
  Transmission Date: 20250409
  Serious: Yes (Death, Hospitalization, Other)
  Sender: BRISTOL-MYERS SQUIBB COMPANY
  Company Number: RU-BRISTOL-MYERS SQUIBB COMPANY-2024-183536

PATIENT
  Age: 66 Year
  Sex: Female

DRUGS (5)
  1. NIVOLUMAB [Suspect]
     Active Substance: NIVOLUMAB
     Indication: Lung squamous cell carcinoma stage III
     Dates: start: 202307
  2. IPILIMUMAB [Suspect]
     Active Substance: IPILIMUMAB
     Indication: Lung squamous cell carcinoma stage III
     Dates: start: 202307
  3. CARBOPLATIN [Suspect]
     Active Substance: CARBOPLATIN
     Indication: Lung squamous cell carcinoma stage III
     Dates: start: 202307
  4. PACLITAXEL [Suspect]
     Active Substance: PACLITAXEL
     Indication: Lung squamous cell carcinoma stage III
     Dosage: 5 AUC
     Dates: start: 202307
  5. DURVALUMAB [Concomitant]
     Active Substance: DURVALUMAB
     Indication: Lung squamous cell carcinoma stage III

REACTIONS (2)
  - Myocarditis [Fatal]
  - Capillary leak syndrome [Unknown]

NARRATIVE: CASE EVENT DATE: 20230701
